FAERS Safety Report 14709947 (Version 5)
Quarter: 2019Q1

REPORT INFORMATION
  Report Type: Report from Study
  Country: JP (occurrence: JP)
  Receive Date: 20180403
  Receipt Date: 20190220
  Transmission Date: 20190417
  Serious: Yes (Death)
  Sender: FDA-Public Use
  Company Number: JP-BEH-2018089302

PATIENT
  Age: 72 Year
  Sex: Female
  Weight: 47 kg

DRUGS (8)
  1. BERIPLEX P/N [Suspect]
     Active Substance: COAGULATION FACTOR IX HUMAN\COAGULATION FACTOR VII HUMAN\COAGULATION FACTOR X HUMAN\PROTEIN C\PROTEIN S HUMAN\PROTHROMBIN
     Indication: HAEMOSTASIS
     Dosage: 2500 IU, UNK
     Route: 042
     Dates: start: 20180316, end: 20180316
  2. KAYTWO N [Concomitant]
     Active Substance: MENATETRENONE
     Indication: PROCOAGULANT THERAPY
     Dosage: 40 MG, QD
     Route: 065
     Dates: start: 20180316, end: 20180316
  3. WARFARIN [Suspect]
     Active Substance: WARFARIN
     Indication: ATRIAL FIBRILLATION
     Dosage: 3.25 MG, UNK
     Route: 048
     Dates: start: 20100817, end: 20180315
  4. EPINEPHRINE. [Suspect]
     Active Substance: EPINEPHRINE
     Indication: CARDIAC ARREST
     Dosage: UNK
     Route: 065
     Dates: end: 20180316
  5. ATROPINE SULATE [Suspect]
     Active Substance: ATROPINE SULFATE
     Indication: BRADYCARDIA
     Dosage: UNK
     Route: 065
     Dates: end: 20180316
  6. EPINEPHRINE. [Suspect]
     Active Substance: EPINEPHRINE
     Indication: BLOOD PRESSURE DECREASED
  7. BERIPLEX P/N [Suspect]
     Active Substance: COAGULATION FACTOR IX HUMAN\COAGULATION FACTOR VII HUMAN\COAGULATION FACTOR X HUMAN\PROTEIN C\PROTEIN S HUMAN\PROTHROMBIN
     Indication: HAEMORRHAGE
     Dosage: UNK
     Route: 042
  8. BERIPLEX P/N [Suspect]
     Active Substance: COAGULATION FACTOR IX HUMAN\COAGULATION FACTOR VII HUMAN\COAGULATION FACTOR X HUMAN\PROTEIN C\PROTEIN S HUMAN\PROTHROMBIN
     Dosage: UNK
     Route: 042

REACTIONS (2)
  - General physical health deterioration [Fatal]
  - Hypoxic-ischaemic encephalopathy [Fatal]

NARRATIVE: CASE EVENT DATE: 20180318
